FAERS Safety Report 4537510-2 (Version None)
Quarter: 2004Q4

REPORT INFORMATION
  Report Type: 
  Country: None (occurrence: None)
  Receive Date: 20041223
  Receipt Date: 20041217
  Transmission Date: 20050328
  Serious: Yes (Other)
  Sender: FDA-Public Use
  Company Number: SE-MERCK-0412SWE00036

PATIENT
  Age: 61 Year
  Sex: Male

DRUGS (3)
  1. ACETAMINOPHEN [Concomitant]
     Route: 065
  2. ALUMINUM HYDROXIDE AND MAGNESIUM CARBONATE [Concomitant]
     Route: 065
  3. VIOXX [Suspect]
     Indication: LOCALISED OSTEOARTHRITIS
     Route: 048
     Dates: start: 20000101, end: 20041001

REACTIONS (1)
  - CEREBRAL HAEMORRHAGE [None]
